FAERS Safety Report 17044361 (Version 1)
Quarter: 2019Q4

REPORT INFORMATION
  Report Type: Spontaneous
  Country: US (occurrence: US)
  Receive Date: 20191116
  Receipt Date: 20191116
  Transmission Date: 20200122
  Serious: No
  Sender: FDA-Public Use
  Company Number: None

PATIENT
  Age: 70 Year
  Sex: Female
  Weight: 78.75 kg

DRUGS (5)
  1. TAMULOSIN HCL .4MG GENERIC [Suspect]
     Active Substance: TAMSULOSIN HYDROCHLORIDE
     Indication: NEPHROLITHIASIS
     Dosage: ?          QUANTITY:1 CAPSULE(S);?
     Route: 048
     Dates: start: 20191107, end: 20191108
  2. COQ10 [Concomitant]
     Active Substance: UBIDECARENONE
  3. CRESTOR 20MG. [Concomitant]
  4. VITAMIN D3 [Concomitant]
     Active Substance: CHOLECALCIFEROL
  5. CALCIUM CITRATE 1000MG [Concomitant]

REACTIONS (3)
  - Dizziness [None]
  - Hypotension [None]
  - Chest pain [None]

NARRATIVE: CASE EVENT DATE: 20191108
